FAERS Safety Report 10490523 (Version 2)
Quarter: 2014Q4

REPORT INFORMATION
  Report Type: Spontaneous
  Country: FR (occurrence: FR)
  Receive Date: 20141002
  Receipt Date: 20141118
  Transmission Date: 20150528
  Serious: Yes (Other)
  Sender: FDA-Public Use
  Company Number: FR-PFIZER INC-2014269588

PATIENT
  Age: 82 Year
  Sex: Female

DRUGS (6)
  1. NOCTAMIDE [Concomitant]
     Active Substance: LORMETAZEPAM
     Dosage: 2 MG, 1X/DAY
     Route: 048
     Dates: start: 20140514
  2. PRADAXA [Concomitant]
     Active Substance: DABIGATRAN ETEXILATE MESYLATE
     Dosage: 1 DF, 2X/DAY
     Route: 048
     Dates: start: 20140514
  3. LEVOTHYROX [Concomitant]
     Active Substance: LEVOTHYROXINE
     Dosage: 1 DF, 1X/DAY
     Route: 048
     Dates: start: 2000
  4. LEXOMIL [Concomitant]
     Active Substance: BROMAZEPAM
     Dosage: 0.5 DF, 3X/DAY
     Route: 048
     Dates: start: 20140514
  5. EFFEXOR LP [Suspect]
     Active Substance: VENLAFAXINE HYDROCHLORIDE
     Dosage: 75 MG, UNK
  6. SOTALEX [Concomitant]
     Active Substance: SOTALOL
     Dosage: 1 DF, 2X/DAY
     Route: 048
     Dates: start: 20140514

REACTIONS (2)
  - Pharyngeal oedema [Unknown]
  - Gastrooesophageal reflux disease [Unknown]
